FAERS Safety Report 9105941 (Version 1)
Quarter: 2013Q1

REPORT INFORMATION
  Report Type: Spontaneous
  Country: US (occurrence: US)
  Receive Date: 20130220
  Receipt Date: 20130220
  Transmission Date: 20140127
  Serious: No
  Sender: FDA-Public Use
  Company Number: US-009507513-1302USA006606

PATIENT
  Sex: Male

DRUGS (6)
  1. PEG-INTRON [Suspect]
     Indication: HEPATITIS C
     Dosage: UNK
     Dates: start: 19960202, end: 19970103
  2. PEG-INTRON [Suspect]
     Dosage: UNK
     Dates: start: 19980206, end: 19980807
  3. PEG-INTRON [Suspect]
     Dosage: UNK
     Dates: start: 20130114
  4. RIBAVIRIN [Suspect]
     Indication: HEPATITIS C
     Dosage: UNK
     Dates: start: 19960202, end: 19970103
  5. RIBAVIRIN [Suspect]
     Dosage: UNK
     Dates: start: 19980206, end: 19980807
  6. RIBAVIRIN [Suspect]
     Dosage: UNK
     Dates: start: 20130114

REACTIONS (4)
  - Drug ineffective [Unknown]
  - Drug ineffective [Unknown]
  - Therapeutic response decreased [Unknown]
  - Therapeutic response decreased [Unknown]
